FAERS Safety Report 7691848-9 (Version None)
Quarter: 2011Q3

REPORT INFORMATION
  Report Type: 
  Country: None (occurrence: None)
  Receive Date: 20110818
  Receipt Date: 20110808
  Transmission Date: 20111222
  Serious: Yes (Other)
  Sender: FDA-Public Use
  Company Number: JP-JNJFOC-20100906807

PATIENT
  Sex: Female
  Weight: 45 kg

DRUGS (10)
  1. RIMATIL [Concomitant]
     Indication: RHEUMATOID ARTHRITIS
     Route: 048
     Dates: start: 20051101, end: 20101104
  2. REMICADE [Suspect]
     Route: 042
     Dates: start: 20100430
  3. LOXOPROFEN [Concomitant]
     Indication: RHEUMATOID ARTHRITIS
     Route: 048
     Dates: start: 20100625
  4. METHOTREXATE [Concomitant]
     Indication: RHEUMATOID ARTHRITIS
     Route: 048
     Dates: start: 20070326
  5. REMICADE [Suspect]
     Route: 042
     Dates: start: 20100528
  6. CLARITHROMYCIN [Concomitant]
     Route: 048
  7. REMICADE [Suspect]
     Route: 042
     Dates: start: 20100416
  8. FOLIC ACID [Concomitant]
     Indication: RHEUMATOID ARTHRITIS
     Route: 048
     Dates: start: 20070326
  9. REMICADE [Suspect]
     Indication: RHEUMATOID ARTHRITIS
     Route: 042
     Dates: start: 20100723
  10. SELBEX [Concomitant]
     Indication: RHEUMATOID ARTHRITIS
     Route: 048
     Dates: start: 20051101

REACTIONS (1)
  - ATYPICAL MYCOBACTERIAL INFECTION [None]
